FAERS Safety Report 18124116 (Version 1)
Quarter: 2020Q3

REPORT INFORMATION
  Report Type: Spontaneous
  Country: CA (occurrence: CA)
  Receive Date: 20200807
  Receipt Date: 20200807
  Transmission Date: 20201103
  Serious: Yes (Hospitalization, Disabling)
  Sender: FDA-Public Use
  Company Number: CA-TEVA-2020-CA-1809643

PATIENT
  Age: 16 Year
  Sex: Male
  Weight: 62 kg

DRUGS (9)
  1. METHOTREXATE. [Suspect]
     Active Substance: METHOTREXATE
     Indication: ACUTE LYMPHOCYTIC LEUKAEMIA
     Route: 042
  2. CETIRIZINE [Concomitant]
     Active Substance: CETIRIZINE HYDROCHLORIDE
  3. LEUCOVORIN CALCIUM. [Concomitant]
     Active Substance: LEUCOVORIN CALCIUM
  4. VINCRISTINE SULFATE. [Concomitant]
     Active Substance: VINCRISTINE SULFATE
  5. MERCAPTOPURINE. [Concomitant]
     Active Substance: MERCAPTOPURINE
  6. PREGABALIN. [Concomitant]
     Active Substance: PREGABALIN
  7. CEFTAZIDIME. [Concomitant]
     Active Substance: CEFTAZIDIME
  8. FUROSEMIDE. [Concomitant]
     Active Substance: FUROSEMIDE
  9. ONDANSETRON [Concomitant]
     Active Substance: ONDANSETRON

REACTIONS (3)
  - Mucosal inflammation [Recovered/Resolved]
  - Weight decreased [Recovered/Resolved]
  - Dysphagia [Recovered/Resolved]
